FAERS Safety Report 16575668 (Version 2)
Quarter: 2019Q3

REPORT INFORMATION
  Report Type: Report from Study
  Country: US (occurrence: US)
  Receive Date: 20190716
  Receipt Date: 20190809
  Transmission Date: 20191004
  Serious: Yes (Other)
  Sender: FDA-Public Use
  Company Number: US-EMD SERONO-9103648

PATIENT
  Age: 58 Year
  Sex: Female

DRUGS (4)
  1. ASPIRIN                            /00002701/ [Interacting]
     Active Substance: ASPIRIN
     Indication: PRODUCT USED FOR UNKNOWN INDICATION
     Dates: start: 201906, end: 2019
  2. TECFIDERA [Interacting]
     Active Substance: DIMETHYL FUMARATE
     Indication: MULTIPLE SCLEROSIS
     Dosage: UNSPECIFIED DOSE
     Dates: start: 201906
  3. REBIF [Suspect]
     Active Substance: INTERFERON BETA-1A
     Indication: MULTIPLE SCLEROSIS
     Route: 058
     Dates: start: 2009, end: 201906
  4. TECFIDERA [Interacting]
     Active Substance: DIMETHYL FUMARATE
     Dates: start: 201907

REACTIONS (7)
  - Flushing [Unknown]
  - Drug interaction [Unknown]
  - Haematochezia [Recovered/Resolved]
  - Pruritus [Unknown]
  - Abdominal distension [Recovering/Resolving]
  - Epigastric discomfort [Unknown]
  - Gastroenteritis viral [Recovering/Resolving]

NARRATIVE: CASE EVENT DATE: 201906
